FAERS Safety Report 8417964 (Version 2)
Quarter: 2012Q4

REPORT INFORMATION
  Report Type: 
  Country: US (occurrence: US)
  Receive Date: 20120221
  Receipt Date: 20121003
  Transmission Date: 20130627
  Serious: Yes (Other)
  Sender: FDA-Public Use
  Company Number: US-US-EMD SERONO, INC.-7112999

PATIENT
  Sex: Female

DRUGS (2)
  1. REBIF [Suspect]
     Indication: MULTIPLE SCLEROSIS
     Route: 058
     Dates: start: 20111215
  2. REBIF [Suspect]
     Route: 058
     Dates: end: 20120106

REACTIONS (2)
  - Self-injurious ideation [Recovered/Resolved]
  - Depressed mood [Recovered/Resolved]
